FAERS Safety Report 4715812-4 (Version None)
Quarter: 2005Q3

REPORT INFORMATION
  Report Type: 
  Country: None (occurrence: None)
  Receive Date: 20050715
  Receipt Date: 20050715
  Transmission Date: 20060218
  Serious: Yes (Other)
  Sender: FDA-Public Use
  Company Number: None

PATIENT
  Age: 54 Year
  Sex: Female
  Weight: 64.4108 kg

DRUGS (3)
  1. LUNESTA [Suspect]
     Indication: INSOMNIA
     Dosage: ONE DAY ORAL
     Route: 048
     Dates: start: 20050527, end: 20050623
  2. LIPITOR [Concomitant]
  3. ACTONEL [Concomitant]

REACTIONS (4)
  - ASTHENIA [None]
  - DIZZINESS [None]
  - HYPERHIDROSIS [None]
  - VISION BLURRED [None]
